FAERS Safety Report 4983759-4 (Version None)
Quarter: 2006Q1

REPORT INFORMATION
  Report Type: 
  Country: None (occurrence: None)
  Receive Date: 20060302
  Receipt Date: 20051102
  Transmission Date: 20060701
  Serious: Yes (Other)
  Sender: FDA-Public Use
  Company Number: 219149

PATIENT
  Age: 14 Year
  Sex: Male

DRUGS (2)
  1. NUTROPIN AQ [Suspect]
     Indication: GROWTH HORMONE DEFICIENCY
     Dosage: 0.67 ML, 6/WEEK
  2. LUPRON [Concomitant]

REACTIONS (2)
  - DRUG INEFFECTIVE [None]
  - EPIPHYSEAL DISORDER [None]
